FAERS Safety Report 8611347-7 (Version None)
Quarter: 2012Q3

REPORT INFORMATION
  Report Type: 
  Country: None (occurrence: None)
  Receive Date: 20120822
  Receipt Date: 20120815
  Transmission Date: 20120928
  Serious: Yes (Hospitalization)
  Sender: FDA-Public Use
  Company Number: PR-ABBOTT-12P-131-0959382-00

PATIENT
  Sex: Female
  Weight: 41.768 kg

DRUGS (2)
  1. HUMIRA [Suspect]
     Route: 058
     Dates: start: 20120725
  2. HUMIRA [Suspect]
     Indication: CROHN'S DISEASE
     Route: 058
     Dates: end: 20120706

REACTIONS (3)
  - ABDOMINAL PAIN [None]
  - GASTROINTESTINAL INFLAMMATION [None]
  - APPENDICITIS [None]
